FAERS Safety Report 15089874 (Version 1)
Quarter: 2018Q2

REPORT INFORMATION
  Report Type: Spontaneous
  Country: US (occurrence: US)
  Receive Date: 20180629
  Receipt Date: 20180629
  Transmission Date: 20180711
  Serious: No
  Sender: FDA-Public Use
  Company Number: US-BIOGEN-2018BI00599258

PATIENT
  Sex: Female

DRUGS (1)
  1. SPINRAZA [Suspect]
     Active Substance: NUSINERSEN
     Indication: SPINAL MUSCULAR ATROPHY
     Route: 065

REACTIONS (7)
  - Painful respiration [Unknown]
  - Nausea [Unknown]
  - Post lumbar puncture syndrome [Unknown]
  - Back pain [Unknown]
  - Injection site pain [Unknown]
  - Insomnia [Unknown]
  - Vomiting [Unknown]
